FAERS Safety Report 9800141 (Version 3)
Quarter: 2014Q1

REPORT INFORMATION
  Report Type: Spontaneous
  Country: US (occurrence: US)
  Receive Date: 20140106
  Receipt Date: 20140214
  Transmission Date: 20141002
  Serious: No
  Sender: FDA-Public Use
  Company Number: US-GILEAD-2014-0091269

PATIENT
  Sex: Female

DRUGS (3)
  1. LETAIRIS [Suspect]
     Indication: PULMONARY HYPERTENSION
     Dosage: 5 MG, QD
     Route: 065
     Dates: start: 20130502
  2. LETAIRIS [Suspect]
     Indication: SCLERODERMA
  3. ADCIRCA [Suspect]

REACTIONS (3)
  - Bronchitis [Unknown]
  - Hypotension [Unknown]
  - Upper respiratory tract infection [Unknown]
